FAERS Safety Report 6996588-7 (Version None)
Quarter: 2010Q3

REPORT INFORMATION
  Report Type: 
  Country: None (occurrence: None)
  Receive Date: 20100918
  Receipt Date: 20090504
  Transmission Date: 20110219
  Serious: No
  Sender: FDA-Public Use
  Company Number: US-WYE-H09226209

PATIENT
  Sex: Male

DRUGS (3)
  1. CORDARONE [Suspect]
     Indication: ARRHYTHMIA
     Route: 048
     Dates: start: 20090401, end: 20090101
  2. CORDARONE [Suspect]
     Route: 048
     Dates: start: 20090101, end: 20090101
  3. CORDARONE [Suspect]
     Route: 048
     Dates: start: 20090101

REACTIONS (2)
  - COLOUR BLINDNESS ACQUIRED [None]
  - PHOTOSENSITIVITY REACTION [None]
